FAERS Safety Report 16369701 (Version 1)
Quarter: 2019Q2

REPORT INFORMATION
  Report Type: Spontaneous
  Country: DE (occurrence: DE)
  Receive Date: 20190530
  Receipt Date: 20190530
  Transmission Date: 20190711
  Serious: Yes (Life-Threatening, Hospitalization, Other)
  Sender: FDA-Public Use
  Company Number: DE-BAXTER-2018BAX001552

PATIENT
  Age: 22 Month
  Sex: Male

DRUGS (16)
  1. SODIUM CHLORIDE. [Suspect]
     Active Substance: SODIUM CHLORIDE
     Indication: PRODUCT USED FOR UNKNOWN INDICATION
     Dosage: 0.9% NOSE SPRAY
     Route: 045
  2. PEGYLATED ASPARAGINASE [Suspect]
     Active Substance: PEGASPARGASE
     Indication: T-CELL TYPE ACUTE LEUKAEMIA
     Route: 065
  3. DAUNORUBICIN [Concomitant]
     Active Substance: DAUNORUBICIN
     Indication: T-CELL TYPE ACUTE LEUKAEMIA
     Route: 065
  4. VINCRISTINE [Concomitant]
     Active Substance: VINCRISTINE
     Indication: T-CELL TYPE ACUTE LEUKAEMIA
     Route: 065
  5. VORICONAZOLE. [Suspect]
     Active Substance: VORICONAZOLE
     Dosage: 9 MG/KG ON DAY ONE FOLLOWED BY 8 MG/KG DAILY
     Route: 042
  6. LEVOFLOXACIN 5 MG/ML SOLUTION FOR INFUSION [Suspect]
     Active Substance: LEVOFLOXACIN
     Indication: ASPERGILLUS INFECTION
     Dosage: 20 MG/KG, IN 2 SINGLE DOSES FOR 21 DAYS
     Route: 042
  7. AMPHOTERICIN B, LIPOSOME [Suspect]
     Active Substance: AMPHOTERICIN B
     Indication: ASPERGILLUS INFECTION
     Dosage: 5 MG/KG, QD
     Route: 065
  8. AMPHOTERICIN B, LIPOSOME [Suspect]
     Active Substance: AMPHOTERICIN B
     Dosage: 2.5 MG/KG, QD
     Route: 065
  9. VORICONAZOLE. [Suspect]
     Active Substance: VORICONAZOLE
     Indication: ASPERGILLUS INFECTION
     Dosage: 8 MG/KG, UNK
     Route: 050
  10. AZITHROMYCIN ANHYDROUS. [Suspect]
     Active Substance: AZITHROMYCIN ANHYDROUS
     Dosage: 10 MG/KG/DAY TWO TIMES A WEEK FOR 6 WEEKS
     Route: 042
  11. PREDNISONE. [Suspect]
     Active Substance: PREDNISONE
     Indication: T-CELL TYPE ACUTE LEUKAEMIA
     Route: 065
  12. AMPHOTERICIN B, LIPOSOME [Suspect]
     Active Substance: AMPHOTERICIN B
     Indication: PRODUCT USED FOR UNKNOWN INDICATION
     Dosage: 8 MG/KG, QD, 28 DAYS
     Route: 065
  13. DEXAMETHASONE. [Suspect]
     Active Substance: DEXAMETHASONE
     Indication: T-CELL TYPE ACUTE LEUKAEMIA
     Dosage: 10 MG/M2 FOR 21 DAYS THEN TAPERING
     Route: 065
  14. AMPHOTERICIN B, LIPOSOME [Suspect]
     Active Substance: AMPHOTERICIN B
     Dosage: 4 MG/KG/DAY
     Route: 065
  15. AZITHROMYCIN ANHYDROUS. [Suspect]
     Active Substance: AZITHROMYCIN ANHYDROUS
     Indication: ASPERGILLUS INFECTION
     Dosage: 10 MG/KG PER DAY FOR 5 DAYS THEN 10 MG/KG/DAY TWO TIMES A WEEK FOR 6 WEEKS
     Route: 042
  16. METHOTREXATE. [Concomitant]
     Active Substance: METHOTREXATE
     Indication: T-CELL TYPE ACUTE LEUKAEMIA
     Route: 037

REACTIONS (6)
  - Aspergillus infection [Recovered/Resolved]
  - Off label use [Unknown]
  - Pneumonia legionella [Recovered/Resolved]
  - Product contamination microbial [Recovered/Resolved]
  - Pancreatitis acute [Recovered/Resolved]
  - Hypokalaemia [Unknown]
